FAERS Safety Report 14017218 (Version 2)
Quarter: 2017Q4

REPORT INFORMATION
  Report Type: Report from Study
  Country: US (occurrence: US)
  Receive Date: 20170927
  Receipt Date: 20171218
  Transmission Date: 20180321
  Serious: Yes (Hospitalization)
  Sender: FDA-Public Use
  Company Number: US-EXELIXIS-XL18417010617

PATIENT
  Age: 68 Year
  Sex: Male
  Weight: 66.21 kg

DRUGS (20)
  1. LEXAPRO [Concomitant]
     Active Substance: ESCITALOPRAM OXALATE
  2. CENTRUM SILVER [Concomitant]
     Active Substance: MINERALS\VITAMINS
  3. FISH OIL [Concomitant]
     Active Substance: FISH OIL
  4. XGEVA [Concomitant]
     Active Substance: DENOSUMAB
  5. ALPHA LIPOIC ACID [Concomitant]
     Active Substance: .ALPHA.-LIPOIC ACID
  6. MIRABEGRON [Concomitant]
     Active Substance: MIRABEGRON
  7. PILOCARPINE. [Concomitant]
     Active Substance: PILOCARPINE
  8. CALTRATE [Concomitant]
     Active Substance: CALCIUM CARBONATE
  9. TRICOR [Concomitant]
     Active Substance: FENOFIBRATE
  10. VITAMIN D3 [Concomitant]
     Active Substance: CHOLECALCIFEROL
  11. ENZYMES [Concomitant]
  12. ACCUTANE [Concomitant]
     Active Substance: ISOTRETINOIN
  13. WELLBUTRIN XL [Concomitant]
     Active Substance: BUPROPION HYDROCHLORIDE
  14. ALTACE [Concomitant]
     Active Substance: RAMIPRIL
  15. LESCOL XL [Concomitant]
     Active Substance: FLUVASTATIN SODIUM
  16. VALTREX [Concomitant]
     Active Substance: VALACYCLOVIR HYDROCHLORIDE
  17. ASPIRIN. [Concomitant]
     Active Substance: ASPIRIN
  18. XL184 [Suspect]
     Active Substance: CABOZANTINIB
     Indication: PAPILLARY THYROID CANCER
     Dosage: 60 MG, QD
     Route: 048
     Dates: start: 20170504, end: 20170921
  19. FLOMAX [Concomitant]
     Active Substance: TAMSULOSIN HYDROCHLORIDE
  20. LEVOTHYROXINE. [Concomitant]
     Active Substance: LEVOTHYROXINE

REACTIONS (6)
  - Atrial fibrillation [Recovered/Resolved]
  - Pneumonia aspiration [Recovered/Resolved]
  - Back pain [Unknown]
  - Sepsis [Recovered/Resolved]
  - Dysphagia [Unknown]
  - Acute respiratory failure [Recovered/Resolved]
